FAERS Safety Report 5216451-1 (Version None)
Quarter: 2007Q1

REPORT INFORMATION
  Report Type: 
  Country: None (occurrence: None)
  Receive Date: 20070118
  Receipt Date: 20070103
  Transmission Date: 20070707
  Serious: Yes (Hospitalization)
  Sender: FDA-Public Use
  Company Number: T200700004

PATIENT
  Age: 60 Year
  Sex: Female
  Weight: 62.8 kg

DRUGS (7)
  1. ANAFRANIL [Suspect]
     Indication: DEPRESSION
     Dosage: UNK, UNK, ORAL
     Route: 048
  2. LASIX [Suspect]
     Indication: PLEURAL EFFUSION
     Dosage: SEE IMAGE
     Route: 048
     Dates: start: 20061026, end: 20061105
  3. LASIX [Suspect]
     Indication: PLEURAL EFFUSION
     Dosage: SEE IMAGE
     Route: 048
     Dates: start: 20061106
  4. BLINDED THERAPY (EXEMESTANE VS ANASTRAZOLE)() [Suspect]
     Indication: BREAST CANCER
     Dosage: UNK, UNK, ORAL
     Route: 048
     Dates: start: 20061116
  5. NITRAZEPAM [Suspect]
     Indication: DEPRESSION
     Dosage: UNK, UNK, ORAL
     Route: 048
  6. ALMARL(AROTINOLOL HYDROCHLORIDE) [Suspect]
     Indication: HYPERTENSION
     Dosage: UNK, UNK, ORAL
     Route: 048
  7. LOXONIN   /00890702(LOXOPROFEN SODIUM) [Suspect]
     Indication: PAIN
     Dosage: UNK, UNK, ORAL
     Route: 048

REACTIONS (1)
  - PLEURAL EFFUSION [None]
